FAERS Safety Report 7681381-2 (Version None)
Quarter: 2011Q3

REPORT INFORMATION
  Report Type: 
  Country: None (occurrence: None)
  Receive Date: 20110812
  Receipt Date: 20110804
  Transmission Date: 20111222
  Serious: Yes (Hospitalization)
  Sender: FDA-Public Use
  Company Number: IN-ABBOTT-11P-078-0844310-00

PATIENT
  Sex: Female

DRUGS (4)
  1. LAMIVUDINE + ZIDOVUDINE [Concomitant]
     Indication: HUMAN IMMUNODEFICIENCY VIRUS TRANSMISSION
     Route: 048
  2. LAMIVUDINE + ZIDOVUDINE [Concomitant]
  3. KALETRA [Suspect]
     Indication: PROPHYLAXIS
     Route: 048
  4. KALETRA [Suspect]

REACTIONS (1)
  - THREATENED LABOUR [None]
